FAERS Safety Report 9076724 (Version 1)
Quarter: 2013Q1

REPORT INFORMATION
  Report Type: Report from Study
  Country: US (occurrence: US)
  Receive Date: 20130129
  Receipt Date: 20130129
  Transmission Date: 20140127
  Serious: No
  Sender: FDA-Public Use
  Company Number: US-ABBOTT-12P-163-0917981-00

PATIENT
  Age: 39 Year
  Sex: Female

DRUGS (4)
  1. HUMIRA 40 MG/0.8 ML PEN [Suspect]
     Indication: CROHN^S DISEASE
     Dosage: 160 MG WEEK 1
     Dates: start: 20120315
  2. HUMIRA 40 MG/0.8 ML PEN [Suspect]
     Dosage: 80MG WEEK 2
  3. HUMIRA 40 MG/0.8 ML PEN [Suspect]
  4. IMURAN [Concomitant]
     Indication: PRODUCT USED FOR UNKNOWN INDICATION

REACTIONS (7)
  - Alopecia [Unknown]
  - Injection site erythema [Unknown]
  - Injection site pain [Unknown]
  - Pruritus [Unknown]
  - Injection site discolouration [Unknown]
  - Injection site induration [Unknown]
  - Acne [Unknown]
